FAERS Safety Report 6290135-3 (Version None)
Quarter: 2009Q3

REPORT INFORMATION
  Report Type: 
  Country: None (occurrence: None)
  Receive Date: 20090730
  Receipt Date: 20081209
  Transmission Date: 20100115
  Serious: Yes (Other)
  Sender: FDA-Public Use
  Company Number: US-BRISTOL-MYERS SQUIBB COMPANY-14436711

PATIENT
  Age: 95 Year
  Sex: Male
  Weight: 82 kg

DRUGS (1)
  1. COUMADIN [Suspect]
     Indication: DEEP VEIN THROMBOSIS
     Dosage: 1 DOSAGE FORM = 2.5MG 3 DAYS A WEEK AND 5MG 4 DAYS A WEEK

REACTIONS (1)
  - INTERNATIONAL NORMALISED RATIO INCREASED [None]
